APPROVED DRUG PRODUCT: SPECTRACEF
Active Ingredient: CEFDITOREN PIVOXIL
Strength: 200MG
Dosage Form/Route: TABLET;ORAL
Application: N021222 | Product #001
Applicant: VANSEN PHARMA
Approved: Aug 29, 2001 | RLD: No | RS: No | Type: DISCN